FAERS Safety Report 5005064-2 (Version None)
Quarter: 2006Q2

REPORT INFORMATION
  Report Type: 
  Country: None (occurrence: None)
  Receive Date: 20060512
  Receipt Date: 20060508
  Transmission Date: 20061013
  Serious: Yes (Life-Threatening, Hospitalization)
  Sender: FDA-Public Use
  Company Number: GBWYE607608MAY06

PATIENT
  Age: 51 Year
  Sex: Male

DRUGS (7)
  1. TAZOCIN (PIPERACILLIN/TAZOBACTAM, INJECTION) [Suspect]
     Indication: SUBACUTE ENDOCARDITIS
     Dosage: 2.25 G 3X PER 1 DAY INTRAVENOUS
     Route: 042
     Dates: start: 20060417, end: 20060420
  2. FLUCONAZOLE [Suspect]
     Indication: SUBACUTE ENDOCARDITIS
     Dosage: 200 MG 1X PER 1 DAY INTRAVENOUS
     Route: 042
     Dates: start: 20060418, end: 20060420
  3. OMEPRAZOLE [Suspect]
     Dates: start: 20060418, end: 20060420
  4. TERLIPRESSIN (TERLIPRESSIN) [Concomitant]
  5. LACTULOSE [Concomitant]
  6. PABRINEX (ASCORBIC ACID/NICOTINAMIDE/PYRIDOXINE HYDROCHLORIDE/RIBOFLAV [Concomitant]
  7. MENADIONE (MENADIONE) [Concomitant]

REACTIONS (1)
  - STEVENS-JOHNSON SYNDROME [None]
